FAERS Safety Report 9856744 (Version 1)
Quarter: 2014Q1

REPORT INFORMATION
  Report Type: Spontaneous
  Country: CH (occurrence: CH)
  Receive Date: 20140130
  Receipt Date: 20140130
  Transmission Date: 20141002
  Serious: Yes (Hospitalization)
  Sender: FDA-Public Use
  Company Number: CH-GLAXOSMITHKLINE-B0964603A

PATIENT
  Age: 60 Year
  Sex: Male

DRUGS (36)
  1. VALTREX [Suspect]
     Indication: PROPHYLAXIS
     Dosage: 500MG TWICE PER DAY
     Route: 048
     Dates: start: 20131118
  2. ZOVIRAX [Suspect]
     Indication: PROPHYLAXIS
     Dosage: 250MG PER DAY
     Route: 042
     Dates: start: 20131201, end: 20131202
  3. ENDOXAN [Suspect]
     Indication: PROPHYLAXIS
     Dosage: 5160MG PER DAY
     Route: 042
     Dates: start: 20131119, end: 20131120
  4. BUSULFAN [Suspect]
     Indication: PROPHYLAXIS
     Dosage: 69MG SEE DOSAGE TEXT
     Route: 042
     Dates: start: 20131121, end: 20131124
  5. ATG [Suspect]
     Indication: PROPHYLAXIS
     Dosage: 500MG SEE DOSAGE TEXT
     Route: 042
     Dates: start: 20131122, end: 20131124
  6. METHOTREXATE [Suspect]
     Indication: PROPHYLAXIS
     Dosage: 20MG SEE DOSAGE TEXT
     Route: 042
     Dates: start: 20131129, end: 20131202
  7. SANDIMMUN [Suspect]
     Indication: PROPHYLAXIS
     Dosage: 250MG SEE DOSAGE TEXT
     Route: 042
     Dates: start: 20131124
  8. SOLU-MEDROL [Suspect]
     Indication: PROPHYLAXIS
     Dosage: 80MG PER DAY
     Route: 042
     Dates: start: 20131122, end: 20131124
  9. AMIKIN [Suspect]
     Indication: BACTERIAL INFECTION
     Dosage: 500MG TWICE PER DAY
     Route: 042
     Dates: start: 20131123, end: 20131125
  10. NOPIL [Suspect]
     Indication: PROPHYLAXIS
     Dosage: 1UNIT THREE TIMES PER WEEK
     Route: 048
     Dates: start: 201311
  11. CEFEPIM [Suspect]
     Indication: BACTERIAL INFECTION
     Dosage: 2G THREE TIMES PER DAY
     Route: 042
     Dates: start: 20131123, end: 20131129
  12. DIFLUCAN [Suspect]
     Indication: PROPHYLAXIS
     Dosage: 400MG WEEKLY
     Route: 048
     Dates: start: 201311
  13. LASIX [Suspect]
     Indication: DIURETIC THERAPY
     Dosage: 20MG PER DAY
     Route: 042
     Dates: start: 20131119
  14. PANTOZOL [Suspect]
     Indication: PROPHYLAXIS
     Dosage: 40MG PER DAY
     Route: 048
     Dates: start: 20131118
  15. ZYLORIC [Suspect]
     Indication: GOUT
     Dosage: 300MG PER DAY
     Route: 048
     Dates: start: 20131118, end: 20131126
  16. ALOXI [Suspect]
     Indication: NAUSEA
     Dosage: .25MG PER DAY
     Route: 042
     Dates: start: 20131119, end: 20131119
  17. UROMITEXAN [Suspect]
     Indication: PROPHYLAXIS
     Dosage: 800MG THREE TIMES PER DAY
     Route: 042
     Dates: start: 20131119, end: 20131121
  18. EMEND [Suspect]
     Indication: NAUSEA
     Dosage: 125MG PER DAY
     Route: 042
     Dates: start: 20131119, end: 20131128
  19. MERONEM [Suspect]
     Indication: BACTERIAL INFECTION
     Dosage: 1G THREE TIMES PER DAY
     Route: 042
     Dates: start: 20131202
  20. ATORVASTATIN [Suspect]
     Indication: HYPERLIPIDAEMIA
     Dosage: 20MG PER DAY
     Route: 048
     Dates: start: 20131118, end: 20131118
  21. ASPIRIN [Suspect]
     Indication: PROPHYLAXIS
     Dosage: 100MG PER DAY
     Route: 048
     Dates: start: 20131118, end: 20131122
  22. FLAMON [Suspect]
     Indication: ESSENTIAL HYPERTENSION
     Dosage: 120MG TWICE PER DAY
     Route: 048
     Dates: start: 20131118, end: 20131202
  23. TRIATEC [Suspect]
     Indication: ESSENTIAL HYPERTENSION
     Dosage: 2.5MG PER DAY
     Route: 048
     Dates: start: 20131122
  24. SOLU CORTEF [Suspect]
     Indication: PROPHYLAXIS
     Dosage: 100MG PER DAY
     Route: 042
     Dates: start: 20131128, end: 20131128
  25. TAZOBAC [Suspect]
     Indication: BACTERIAL INFECTION
     Dosage: 4.5G THREE TIMES PER DAY
     Route: 042
     Dates: start: 20131129, end: 20131201
  26. TRANDATE [Suspect]
     Indication: ESSENTIAL HYPERTENSION
     Dosage: 200MG SEE DOSAGE TEXT
     Route: 042
     Dates: start: 20131201, end: 20131203
  27. TAVEGYL [Concomitant]
  28. FORTECORTIN [Concomitant]
  29. HEPARIN [Concomitant]
  30. PASPERTIN [Concomitant]
  31. FLATULEX [Concomitant]
  32. DUSPATALIN [Concomitant]
  33. LAXOBERON [Concomitant]
  34. LEUCOVORIN [Concomitant]
  35. URSOFALK [Concomitant]
  36. DEFIBROTIDE [Concomitant]

REACTIONS (4)
  - Blood bilirubin increased [Recovering/Resolving]
  - Jaundice [Recovering/Resolving]
  - Haemolysis [Unknown]
  - Hepatic enzyme increased [Recovering/Resolving]
